FAERS Safety Report 13443117 (Version 1)
Quarter: 2017Q2

REPORT INFORMATION
  Report Type: Spontaneous
  Country: SE (occurrence: SE)
  Receive Date: 20170414
  Receipt Date: 20170414
  Transmission Date: 20170830
  Serious: Yes (Other)
  Sender: FDA-Public Use
  Company Number: SE-CELGENEUS-SWE-20170401883

PATIENT
  Sex: Male

DRUGS (1)
  1. REVLIMID [Suspect]
     Active Substance: LENALIDOMIDE
     Indication: PLASMA CELL MYELOMA
     Route: 048
     Dates: start: 2017

REACTIONS (16)
  - Muscle spasms [Unknown]
  - Myalgia [Unknown]
  - Headache [Unknown]
  - Chest pain [Unknown]
  - Arthralgia [Unknown]
  - Mouth ulceration [Unknown]
  - Lung infection [Unknown]
  - Upper respiratory tract infection [Unknown]
  - Dyspnoea [Unknown]
  - Abdominal pain [Unknown]
  - Hypoaesthesia [Unknown]
  - Contusion [Unknown]
  - Abdominal distension [Unknown]
  - Constipation [Unknown]
  - Decreased appetite [Unknown]
  - Formication [Unknown]

NARRATIVE: CASE EVENT DATE: 2017
